FAERS Safety Report 19710233 (Version 1)
Quarter: 2021Q3

REPORT INFORMATION
  Report Type: Report from Study
  Country: CA (occurrence: CA)
  Receive Date: 20210817
  Receipt Date: 20210817
  Transmission Date: 20211014
  Serious: Yes (Hospitalization)
  Sender: FDA-Public Use
  Company Number: CA-JNJFOC-20210743678

PATIENT
  Age: 57 Year
  Sex: Female
  Weight: 106.8 kg

DRUGS (1)
  1. REMICADE [Suspect]
     Active Substance: INFLIXIMAB
     Indication: CROHN^S DISEASE
     Route: 042
     Dates: start: 20151210

REACTIONS (2)
  - Sepsis [Recovering/Resolving]
  - Anal abscess [Unknown]

NARRATIVE: CASE EVENT DATE: 20210725
